FAERS Safety Report 7938365-6 (Version None)
Quarter: 2011Q4

REPORT INFORMATION
  Report Type: 
  Country: None (occurrence: None)
  Receive Date: 20111123
  Receipt Date: 20111114
  Transmission Date: 20120403
  Serious: Yes (Other)
  Sender: FDA-Public Use
  Company Number: CA-ASTRAZENECA-2011SE68832

PATIENT
  Age: 61 Year
  Sex: Female

DRUGS (4)
  1. GLUCOSAMINE [Concomitant]
  2. ATACAND [Suspect]
     Route: 048
  3. METOPROLOL TARTRATE [Concomitant]
     Route: 048
  4. RASILEZ [Concomitant]

REACTIONS (9)
  - HEART RATE INCREASED [None]
  - MOVEMENT DISORDER [None]
  - MALAISE [None]
  - ARTHRALGIA [None]
  - BLOOD PRESSURE INCREASED [None]
  - MYALGIA [None]
  - GAIT DISTURBANCE [None]
  - PAIN [None]
  - TACHYCARDIA [None]
